FAERS Safety Report 10141246 (Version 1)
Quarter: 2014Q2

REPORT INFORMATION
  Report Type: Report from Study
  Country: US (occurrence: US)
  Receive Date: 20140429
  Receipt Date: 20140429
  Transmission Date: 20141212
  Serious: No
  Sender: FDA-Public Use
  Company Number: US-ALEXION-A201202823

PATIENT
  Sex: Female

DRUGS (1)
  1. SOLIRIS [Suspect]
     Indication: HAEMOLYTIC URAEMIC SYNDROME
     Dosage: UNK
     Route: 042

REACTIONS (7)
  - Quality of life decreased [Unknown]
  - Activities of daily living impaired [Unknown]
  - Pain [Unknown]
  - Fatigue [Unknown]
  - Oedema [Unknown]
  - Anxiety [Unknown]
  - Diarrhoea [Unknown]
